FAERS Safety Report 7049974-3 (Version None)
Quarter: 2010Q4

REPORT INFORMATION
  Report Type: 
  Country: None (occurrence: None)
  Receive Date: 20101018
  Receipt Date: 20101012
  Transmission Date: 20110411
  Serious: Yes (Hospitalization)
  Sender: FDA-Public Use
  Company Number: PHHO2010TH15446

PATIENT
  Sex: Female

DRUGS (5)
  1. AFINITOR [Suspect]
     Indication: METASTATIC RENAL CELL CARCINOMA
     Dosage: 10 MG / DAY
     Route: 048
     Dates: start: 20100823, end: 20101009
  2. RANITIDINE [Concomitant]
     Indication: PEPTIC ULCER
     Dosage: UNK
     Dates: start: 20100921
  3. MEGACE [Concomitant]
     Indication: DECREASED APPETITE
     Dosage: UNK
     Dates: start: 20100907
  4. PLASIL [Concomitant]
     Indication: NAUSEA
     Dosage: UNK
     Dates: start: 20101005
  5. PLASIL [Concomitant]
     Indication: VOMITING

REACTIONS (2)
  - LETHARGY [None]
  - STOMATITIS [None]
